FAERS Safety Report 7888867-6 (Version None)
Quarter: 2011Q4

REPORT INFORMATION
  Report Type: 
  Country: None (occurrence: None)
  Receive Date: 20111031
  Receipt Date: 20111018
  Transmission Date: 20120403
  Serious: Yes (Other)
  Sender: FDA-Public Use
  Company Number: 2011SP008759

PATIENT
  Age: 66 Year
  Sex: Male

DRUGS (11)
  1. MOVICOLON [Concomitant]
  2. LAMICTAL [Concomitant]
  3. PHENYTOIN [Suspect]
     Indication: PRODUCT USED FOR UNKNOWN INDICATION
     Dosage: 350 MG;QD ; 200 MG;BID
  4. OMEPRAZOLE [Concomitant]
  5. SEPTRA [Concomitant]
  6. KEPPRA [Concomitant]
  7. TEMODAL [Suspect]
     Indication: GLIOBLASTOMA
     Dosage: 150 MG;QD ; 360 MG;QM;PO
     Route: 048
  8. TEMODAL [Suspect]
     Indication: GLIOBLASTOMA
     Dosage: 150 MG;QD ; 360 MG;QM;PO
     Route: 048
  9. LACTULOSE [Concomitant]
  10. DEXAMETHASONE [Concomitant]
  11. ONDANSETRON [Concomitant]

REACTIONS (3)
  - DRUG INEFFECTIVE [None]
  - GRAND MAL CONVULSION [None]
  - ANTICONVULSANT DRUG LEVEL BELOW THERAPEUTIC [None]
